FAERS Safety Report 18944371 (Version 1)
Quarter: 2021Q1

REPORT INFORMATION
  Report Type: Spontaneous
  Country: US (occurrence: US)
  Receive Date: 20210226
  Receipt Date: 20210226
  Transmission Date: 20210420
  Serious: No
  Sender: FDA-Public Use
  Company Number: US-TARO-2020TAR01324

PATIENT

DRUGS (2)
  1. MICONAZOLE NITRATE VAGINAL CREAM USP 2% 7 DAY CREAM [Suspect]
     Active Substance: MICONAZOLE NITRATE
     Indication: RASH ERYTHEMATOUS
     Dosage: BID, DOSE JUST ENOUGH TO RUB IT IN BOTH ARMPITS TOPICALLY
     Route: 061
     Dates: start: 20200803
  2. INSULIN [Concomitant]
     Active Substance: INSULIN NOS
     Indication: PRODUCT USED FOR UNKNOWN INDICATION
     Dosage: UNK
     Route: 065

REACTIONS (2)
  - Rash erythematous [Not Recovered/Not Resolved]
  - Off label use [Unknown]

NARRATIVE: CASE EVENT DATE: 20200803
